FAERS Safety Report 25622192 (Version 1)
Quarter: 2025Q3

REPORT INFORMATION
  Report Type: Spontaneous
  Country: GB (occurrence: GB)
  Receive Date: 20250730
  Receipt Date: 20250730
  Transmission Date: 20251021
  Serious: Yes (Death, Hospitalization, Other)
  Sender: REGENERON
  Company Number: GB-BAYER-2025A100000

PATIENT
  Age: 91 Year
  Sex: Female

DRUGS (2)
  1. EYLEA [Suspect]
     Active Substance: AFLIBERCEPT
     Indication: Neovascular age-related macular degeneration
     Dates: start: 202312
  2. EYLEA [Suspect]
     Active Substance: AFLIBERCEPT
     Dates: start: 20250212, end: 20250212

REACTIONS (8)
  - Death [Fatal]
  - Blindness [Unknown]
  - Renal impairment [Unknown]
  - Eye inflammation [Unknown]
  - Anterior chamber cell [Unknown]
  - Photophobia [Unknown]
  - White blood cell count increased [Unknown]
  - Conjunctival disorder [Unknown]

NARRATIVE: CASE EVENT DATE: 20250220
